FAERS Safety Report 4709189-8 (Version None)
Quarter: 2005Q3

REPORT INFORMATION
  Report Type: 
  Country: None (occurrence: None)
  Receive Date: 20050706
  Receipt Date: 20050620
  Transmission Date: 20060218
  Serious: Yes (Hospitalization)
  Sender: FDA-Public Use
  Company Number: 215725

PATIENT
  Age: 66 Year
  Sex: Male
  Weight: 74 kg

DRUGS (12)
  1. AVASTIN [Suspect]
     Indication: COLORECTAL CANCER METASTATIC
     Dosage: 370 MG, Q2W, INTRAVENOUS
     Route: 042
     Dates: start: 20050531
  2. OXALIPLATIN [Suspect]
     Indication: COLORECTAL CANCER METASTATIC
     Dosage: 150 MG, Q2W, INTRAVENOUS
     Route: 042
     Dates: start: 20050531
  3. FLUOROURACIL [Suspect]
     Indication: COLORECTAL CANCER METASTATIC
     Dosage: 900 MG, INTRAVENOUS
     Route: 042
     Dates: start: 20050531
  4. LEUCOVORIN                       (LEUCOVORIN CLACIUM) [Suspect]
     Indication: COLORECTAL CANCER METASTATIC
     Dosage: 35 MG, INTRAVENOUS
     Route: 042
     Dates: start: 20050531
  5. TRAMADOL HCL [Concomitant]
  6. MIRTAZAPINE (MIRTAZIPINE) [Concomitant]
  7. MAXOLON [Concomitant]
  8. PANADOL (ACETAMINOPHEN) [Concomitant]
  9. NAVOBAN (TROPISETRON HYDROCHLORIDE) [Concomitant]
  10. DEXAMETHASONE [Concomitant]
  11. CALCIUM (CALCIUM NOS) [Concomitant]
  12. MAGNESIUM SULFATE [Concomitant]

REACTIONS (8)
  - BLOOD CULTURE POSITIVE [None]
  - CATHETER RELATED INFECTION [None]
  - HEART RATE INCREASED [None]
  - NAUSEA [None]
  - NEUTROPENIC INFECTION [None]
  - NEUTROPENIC SEPSIS [None]
  - STAPHYLOCOCCAL INFECTION [None]
  - VOMITING [None]
